FAERS Safety Report 4742286-X (Version None)
Quarter: 2005Q3

REPORT INFORMATION
  Report Type: 
  Country: None (occurrence: None)
  Receive Date: 20050811
  Receipt Date: 20050404
  Transmission Date: 20060218
  Serious: No
  Sender: FDA-Public Use
  Company Number: US-GLAXOSMITHKLINE-A0552582A

PATIENT
  Age: 34 Year
  Sex: Female

DRUGS (3)
  1. PAXIL CR [Suspect]
     Indication: DEPRESSION
     Dosage: 12.5MG PER DAY
     Route: 048
  2. ZYRTEC [Concomitant]
  3. LEVORA 0.15/30-21 [Concomitant]

REACTIONS (2)
  - FATIGUE [None]
  - WEIGHT INCREASED [None]
